FAERS Safety Report 9688745 (Version 2)
Quarter: 2014Q1

REPORT INFORMATION
  Report Type: Spontaneous
  Country: US (occurrence: US)
  Receive Date: 20131114
  Receipt Date: 20140205
  Transmission Date: 20141002
  Serious: Yes (Other)
  Sender: FDA-Public Use
  Company Number: US-GLAXOSMITHKLINE-A1048876A

PATIENT
  Age: 77 Year
  Sex: Male
  Weight: 73.2 kg

DRUGS (7)
  1. ARZERRA [Suspect]
     Indication: CHRONIC LYMPHOCYTIC LEUKAEMIA
     Dosage: 2000MG MONTHLY
     Route: 042
  2. TYLENOL [Concomitant]
  3. BENADRYL [Concomitant]
  4. SOLUMEDROL [Concomitant]
  5. FAMOTIDINE [Concomitant]
  6. ZANTAC [Concomitant]
  7. ZOFRAN [Concomitant]

REACTIONS (8)
  - Anaphylactic reaction [Recovered/Resolved]
  - Dyspnoea [Recovered/Resolved]
  - Chest discomfort [Recovered/Resolved]
  - Oxygen saturation decreased [Recovered/Resolved]
  - Skin discolouration [Recovered/Resolved]
  - Infusion related reaction [Recovered/Resolved]
  - Tremor [Recovered/Resolved]
  - Chills [Recovered/Resolved]
